FAERS Safety Report 8640676 (Version 3)
Quarter: 2013Q4

REPORT INFORMATION
  Report Type: Spontaneous
  Country: US (occurrence: US)
  Receive Date: 20120628
  Receipt Date: 20131227
  Transmission Date: 20140711
  Serious: Yes (Hospitalization)
  Sender: FDA-Public Use
  Company Number: US-BAYER-2012-062641

PATIENT
  Age: 29 Year
  Sex: Female
  Weight: 45.35 kg

DRUGS (5)
  1. GIANVI [Suspect]
  2. YAZ [Suspect]
     Indication: CONTRACEPTION
     Dosage: UNK
     Dates: start: 2007, end: 2009
  3. ZOFRAN [Concomitant]
     Dosage: 4 MG, UNK
     Dates: start: 20110613
  4. BENTYL [Concomitant]
     Dosage: 20 MG, UNK
  5. STEROID INJECTIONS [Concomitant]
     Indication: ECZEMA
     Dosage: MONTHLY

REACTIONS (4)
  - Pulmonary embolism [None]
  - Vena cava thrombosis [None]
  - Injury [None]
  - Emotional distress [None]
